FAERS Safety Report 25963224 (Version 1)
Quarter: 2025Q4

REPORT INFORMATION
  Report Type: Spontaneous
  Country: EU (occurrence: EU)
  Receive Date: 20251027
  Receipt Date: 20251027
  Transmission Date: 20260117
  Serious: Yes (Life-Threatening)
  Sender: MYLAN
  Company Number: EU-MYLANLABS-2025M1091350

PATIENT
  Age: 68 Year
  Sex: Female

DRUGS (2)
  1. ROPIVACAINE [Suspect]
     Active Substance: ROPIVACAINE
     Indication: Local anaesthesia
     Dosage: 20 MILLILITER, SOLUTION
  2. ROPIVACAINE [Suspect]
     Active Substance: ROPIVACAINE
     Indication: Postoperative analgesia

REACTIONS (5)
  - Local anaesthetic systemic toxicity [Recovered/Resolved]
  - Dysgeusia [Recovered/Resolved]
  - Disorientation [Recovered/Resolved]
  - Hypoaesthesia oral [Recovered/Resolved]
  - Hypotension [Recovered/Resolved]
